FAERS Safety Report 18354074 (Version 1)
Quarter: 2020Q4

REPORT INFORMATION
  Report Type: Spontaneous
  Country: US (occurrence: US)
  Receive Date: 20201006
  Receipt Date: 20201006
  Transmission Date: 20210114
  Serious: Yes (Death)
  Sender: FDA-Public Use
  Company Number: None

PATIENT
  Age: 54 Year
  Sex: Male
  Weight: 213.6 kg

DRUGS (12)
  1. FAMOTIDINE 20MG FEED TUBE DAILY [Concomitant]
     Dates: start: 20200626, end: 20200707
  2. INSULIN GLARGINE/LISPRO/REGULAR [Concomitant]
     Dates: start: 20200620, end: 20200707
  3. MEROPENEM 1 GM IV DAILY ONCE THEN 0.5GM IV Q6HR [Concomitant]
     Dates: start: 20200704, end: 20200708
  4. COVALESCENT PLASMA [Concomitant]
     Dates: start: 20200620, end: 20200620
  5. AZITHROMYCIN 500MG IV ONCE THEN 500MG PO DAILY [Concomitant]
     Dates: start: 20200620, end: 20200624
  6. CEFEPIME 1GM IV Q6HR [Concomitant]
     Dates: start: 20200625, end: 20200701
  7. DEXAMETHASONE 20MG IV DAILY X3 DAYS THEN 10MG IV DAILY [Concomitant]
     Dates: start: 20200619, end: 20200702
  8. REMDESIVIR. [Suspect]
     Active Substance: REMDESIVIR
     Indication: COVID-19 PNEUMONIA
     Route: 042
     Dates: start: 20200619, end: 20200630
  9. VANCOMYCIN PER PROTOCOL [Concomitant]
     Dates: start: 20200625, end: 20200706
  10. ASCORBIC ACID 1000MG PO Q12HR [Concomitant]
     Dates: start: 20200619, end: 20200623
  11. ENOXAPARIN 40MG SQ X1DAY, 60MG SQ BID X2DAY, THEN 100MG SQ BID [Concomitant]
     Dates: start: 20200618, end: 20200704
  12. ZINC SULFATE 220MG PO BID [Concomitant]
     Dates: start: 20200619, end: 20200629

REACTIONS (14)
  - Cardiac arrest [None]
  - White blood cell count increased [None]
  - Platelet count decreased [None]
  - Red blood cell count decreased [None]
  - Acute kidney injury [None]
  - Haemodialysis [None]
  - Blood potassium increased [None]
  - Aspartate aminotransferase increased [None]
  - Hypoxia [None]
  - Blood magnesium increased [None]
  - Haemoglobin decreased [None]
  - Blood glucose increased [None]
  - Blood lactate dehydrogenase increased [None]
  - Alanine aminotransferase increased [None]

NARRATIVE: CASE EVENT DATE: 20200708
